FAERS Safety Report 20592968 (Version 3)
Quarter: 2022Q2

REPORT INFORMATION
  Report Type: Spontaneous
  Country: RU (occurrence: RU)
  Receive Date: 20220315
  Receipt Date: 20220630
  Transmission Date: 20220720
  Serious: Yes (Hospitalization, Other)
  Sender: FDA-Public Use
  Company Number: RU-SA-2022SA074763

PATIENT
  Age: 59 Year
  Sex: Female
  Weight: 105 kg

DRUGS (4)
  1. TOUJEO [Suspect]
     Active Substance: INSULIN GLARGINE
     Indication: Type 2 diabetes mellitus
     Dosage: 18 IU, QD
     Route: 058
     Dates: start: 2020, end: 20220315
  2. TOUJEO [Suspect]
     Active Substance: INSULIN GLARGINE
     Dosage: 20 IU, QD
     Route: 058
     Dates: start: 20220315
  3. METFORMIN [Concomitant]
     Active Substance: METFORMIN HYDROCHLORIDE
     Indication: Type 2 diabetes mellitus
     Dosage: 2 DF, QD
     Route: 048
     Dates: start: 2020
  4. DIABETONE [GLIBENCLAMIDE] [Concomitant]
     Indication: Type 2 diabetes mellitus
     Dosage: 3 DF (1 MORNING + 2 TAB EVENING)
     Route: 048
     Dates: start: 2020

REACTIONS (7)
  - Polyneuropathy [Recovering/Resolving]
  - Paraesthesia [Recovering/Resolving]
  - Hyperglycaemia [Recovered/Resolved]
  - Somatic symptom disorder [Recovering/Resolving]
  - Weight increased [Recovered/Resolved]
  - Intentional product use issue [Unknown]
  - Hyperglycaemia [Recovering/Resolving]

NARRATIVE: CASE EVENT DATE: 20200101
